FAERS Safety Report 18840104 (Version 2)
Quarter: 2021Q1

REPORT INFORMATION
  Report Type: Spontaneous
  Country: GB (occurrence: GB)
  Receive Date: 20210203
  Receipt Date: 20210309
  Transmission Date: 20210419
  Serious: Yes (Hospitalization, Other)
  Sender: FDA-Public Use
  Company Number: GB-ACCORD-216279

PATIENT
  Age: 35 Year
  Sex: Female

DRUGS (30)
  1. TRASTUZUMAB/EMTANSINE [Suspect]
     Active Substance: ADO-TRASTUZUMAB EMTANSINE
     Indication: BREAST CANCER METASTATIC
     Dosage: 3.6 MILLIGRAM/SQ. METER, Q3WK
     Route: 042
     Dates: start: 20171212, end: 20180817
  2. VENLAFAXINE/VENLAFAXINE HYDROCHLORIDE [Concomitant]
     Active Substance: VENLAFAXINE HYDROCHLORIDE
     Indication: ABDOMINAL PAIN
     Dosage: 75 MILLIGRAM
     Route: 048
     Dates: start: 20201215
  3. EPIRUBICIN [Concomitant]
     Active Substance: EPIRUBICIN
     Indication: BREAST CANCER METASTATIC
     Dosage: 22.5 MILLIGRAM/SQ. METER, QWK
     Route: 042
     Dates: start: 20200512, end: 20200820
  4. CLOTRIMAZOLE. [Concomitant]
     Active Substance: CLOTRIMAZOLE
     Indication: ABDOMINAL PAIN
     Dosage: UNK
     Route: 061
     Dates: start: 20201216
  5. TRASTUZUMAB. [Suspect]
     Active Substance: TRASTUZUMAB
     Indication: HER2 POSITIVE BREAST CANCER
     Dosage: LOADING DOSE MODIFIED AS SWITCHED TO MAINTENANCE, DATE OF LAST ADMINISTERED DOSE: 22?JUL?2016
     Route: 042
     Dates: start: 20160722
  6. DOCUSATE/DOCUSATE CALCIUM/DOCUSATE POTASSIUM/DOCUSATE SODIUM [Concomitant]
     Active Substance: DOCUSATE
     Indication: ABDOMINAL PAIN
     Dosage: 200 MILLIGRAM, 0.5 DAY
     Route: 048
     Dates: start: 20201215
  7. HALOPERIDOL. [Concomitant]
     Active Substance: HALOPERIDOL
     Indication: ABDOMINAL PAIN
     Dosage: 0.5 MILLIGRAM
     Route: 058
  8. MIDAZOLAM. [Concomitant]
     Active Substance: MIDAZOLAM
     Indication: ABDOMINAL PAIN
     Dosage: 2.5 MILLIGRAM
     Route: 058
  9. BECLOMETASONE [Concomitant]
     Active Substance: BECLOMETHASONE DIPROPIONATE
     Dosage: 200 MILLIGRAM, 0.5 DAY
     Route: 055
  10. SODIUM CHLORIDE. [Concomitant]
     Active Substance: SODIUM CHLORIDE
     Indication: ABDOMINAL PAIN
     Dosage: 0.9 PERCENT
     Route: 042
     Dates: start: 20201215
  11. DOCETAXEL. [Suspect]
     Active Substance: DOCETAXEL
     Indication: HER2 POSITIVE BREAST CANCER
     Dosage: 105 MILLIGRAM, Q3WK
     Route: 042
     Dates: start: 20160723, end: 20160723
  12. CAPECITABINE. [Suspect]
     Active Substance: CAPECITABINE
     Indication: BREAST CANCER METASTATIC
     Dosage: 1950 MILLIGRAM, 0.5 DAY
     Route: 048
     Dates: start: 20180905, end: 20190327
  13. DEXAMETHASONE. [Concomitant]
     Active Substance: DEXAMETHASONE
     Indication: ABDOMINAL PAIN
     Dosage: 6 MILLIGRAM, QD
     Route: 048
     Dates: start: 20201215
  14. GLYCOPYRRONIUM [Concomitant]
     Active Substance: GLYCOPYRRONIUM
     Indication: DYSPNOEA
     Dosage: 200 MILLIGRAM
     Route: 058
  15. LANSOPRAZOLE. [Concomitant]
     Active Substance: LANSOPRAZOLE
     Indication: ABDOMINAL PAIN
     Dosage: 30 MILLIGRAM, QD
     Route: 048
     Dates: start: 20201215
  16. LORAZEPAM. [Concomitant]
     Active Substance: LORAZEPAM
     Indication: ABDOMINAL PAIN
     Dosage: 1 MILLIGRAM, QD
     Route: 048
     Dates: start: 20201215
  17. DOCETAXEL. [Suspect]
     Active Substance: DOCETAXEL
     Indication: PRODUCT USED FOR UNKNOWN INDICATION
     Dosage: 140 MILLIGRAM, Q3WK
     Route: 042
     Dates: start: 20160812, end: 20160812
  18. BENZYDAMINE [Concomitant]
     Active Substance: BENZYDAMINE
     Dosage: 0.15 PERCENT, 0.25 DAY
     Route: 048
  19. XGEVA [Suspect]
     Active Substance: DENOSUMAB
     Indication: METASTASES TO BONE
     Dosage: 120 MILLIGRAM, Q3WK
     Route: 042
     Dates: start: 20160721
  20. ERIBULIN [Suspect]
     Active Substance: ERIBULIN
     Indication: BREAST CANCER METASTATIC
     Dosage: 1.23 MILLIGRAM/SQ. METER, Q3WK
     Route: 042
     Dates: start: 20190516, end: 20190516
  21. OXYCODONE/OXYCODONE HYDROCHLORIDE/OXYCODONE PECTINATE/OXYCODONE TEREPHTHALATE [Concomitant]
     Active Substance: OXYCODONE
     Indication: ABDOMINAL PAIN
     Dosage: 10 MILLIGRAM
     Route: 058
  22. AMLODIPINE [Concomitant]
     Active Substance: AMLODIPINE BESYLATE
     Indication: ABDOMINAL PAIN
     Dosage: 5 MILLIGRAM, QD
     Route: 048
     Dates: start: 20201217
  23. GABAPENTIN. [Concomitant]
     Active Substance: GABAPENTIN
     Indication: ABDOMINAL PAIN
     Dosage: 400 MILLIGRAM, 0.33 DAY
     Route: 048
     Dates: start: 20201215
  24. LEVOMEPROMAZINE [Concomitant]
     Active Substance: LEVOMEPROMAZINE
     Indication: ABDOMINAL PAIN
     Dosage: 3.13 MILLIGRAM
     Route: 058
  25. SALBUTAMOL [Concomitant]
     Active Substance: ALBUTEROL
     Indication: DYSPNOEA
     Dosage: 100 MICROGRAM, 0.25 DAY
     Route: 055
  26. PERTUZUMAB. [Suspect]
     Active Substance: PERTUZUMAB
     Indication: PRODUCT USED FOR UNKNOWN INDICATION
     Dosage: 420 MILLIGRAM, Q3WK
     Route: 042
     Dates: start: 20160811
  27. TRASTUZUMAB. [Suspect]
     Active Substance: TRASTUZUMAB
     Indication: PRODUCT USED FOR UNKNOWN INDICATION
     Dosage: 441 MILLIGRAM, Q3WK
     Route: 042
     Dates: start: 20161115, end: 20171116
  28. DOCETAXEL. [Suspect]
     Active Substance: DOCETAXEL
     Indication: PRODUCT USED FOR UNKNOWN INDICATION
     Dosage: 190 MILLIGRAM, Q3WK
     Route: 042
     Dates: start: 20160902, end: 20161115
  29. PERTUZUMAB. [Suspect]
     Active Substance: PERTUZUMAB
     Indication: HER2 POSITIVE BREAST CANCER
     Dosage: 840 MILLIGRAM
     Route: 042
     Dates: start: 20160721, end: 20160721
  30. TRASTUZUMAB. [Suspect]
     Active Substance: TRASTUZUMAB
     Indication: PRODUCT USED FOR UNKNOWN INDICATION
     Dosage: 420 MILLIGRAM, Q3WK
     Route: 042
     Dates: start: 20160812, end: 20161017

REACTIONS (3)
  - Headache [Recovered/Resolved]
  - Intentional product use issue [Unknown]
  - Pyrexia [Recovered/Resolved]

NARRATIVE: CASE EVENT DATE: 20190113
